FAERS Safety Report 14360408 (Version 2)
Quarter: 2018Q1

REPORT INFORMATION
  Report Type: Report from Study
  Country: ES (occurrence: ES)
  Receive Date: 20180106
  Receipt Date: 20180305
  Transmission Date: 20180509
  Serious: Yes (Hospitalization, Other)
  Sender: FDA-Public Use
  Company Number: ES-BRISTOL-MYERS SQUIBB COMPANY-BMS-2018-000076

PATIENT
  Age: 74 Year
  Sex: Male
  Weight: 70 kg

DRUGS (6)
  1. SEGURIL [Concomitant]
     Active Substance: FUROSEMIDE
     Indication: LYMPHOEDEMA
     Dosage: 40 MG, UNK
     Route: 048
     Dates: start: 20170912, end: 20171226
  2. MS CONTIN [Concomitant]
     Active Substance: MORPHINE SULFATE
     Indication: PAIN
     Dosage: 20 MG, UNK
     Route: 048
     Dates: start: 20170727
  3. OMEPRAZOLE. [Concomitant]
     Active Substance: OMEPRAZOLE
     Indication: PROPHYLAXIS
     Dosage: 20 MG, UNK
     Route: 048
     Dates: start: 20170713
  4. NIVOLUMAB [Suspect]
     Active Substance: NIVOLUMAB
     Indication: CHORDOMA
     Dosage: 210 MG, Q2WK
     Route: 042
     Dates: start: 20171130
  5. IPILIMUMAB [Suspect]
     Active Substance: IPILIMUMAB
     Indication: CHORDOMA
     Dosage: 70 MG, Q6WK
     Route: 042
     Dates: start: 20171130
  6. LYRICA [Concomitant]
     Active Substance: PREGABALIN
     Indication: PAIN
     Dosage: 300 MG, UNK
     Route: 048
     Dates: start: 20170730

REACTIONS (1)
  - Respiratory tract infection [Recovered/Resolved]

NARRATIVE: CASE EVENT DATE: 20171225
